FAERS Safety Report 13892892 (Version 1)
Quarter: 2017Q3

REPORT INFORMATION
  Report Type: Spontaneous
  Country: US (occurrence: US)
  Receive Date: 20170822
  Receipt Date: 20170822
  Transmission Date: 20171127
  Serious: Yes (Other)
  Sender: FDA-Public Use
  Company Number: US-ROCHE-1104041

PATIENT
  Age: 52 Year
  Sex: Female
  Weight: 70.37 kg

DRUGS (4)
  1. HERCEPTIN [Suspect]
     Active Substance: TRASTUZUMAB
     Route: 065
     Dates: start: 20120910
  2. HERCEPTIN [Suspect]
     Active Substance: TRASTUZUMAB
     Indication: BREAST CANCER RECURRENT
     Route: 042
     Dates: start: 20120820
  3. ZOMETA [Concomitant]
     Active Substance: ZOLEDRONIC ACID
     Indication: BREAST CANCER
     Route: 042
     Dates: start: 20100922
  4. FASLODEX [Concomitant]
     Active Substance: FULVESTRANT
     Indication: BREAST CANCER
     Dosage: 3 DOSES
     Route: 030
     Dates: start: 20120820

REACTIONS (12)
  - Anaphylactic reaction [Recovered/Resolved]
  - Tremor [Recovered/Resolved]
  - Chills [Not Recovered/Not Resolved]
  - Dyspnoea [Recovered/Resolved]
  - Blood pressure abnormal [Recovered/Resolved]
  - Respiratory rate increased [Recovered/Resolved]
  - Ejection fraction decreased [Recovering/Resolving]
  - Somnolence [Not Recovered/Not Resolved]
  - Oxygen saturation decreased [Recovered/Resolved]
  - Chest discomfort [Unknown]
  - Anaemia [Unknown]
  - Heart rate increased [Recovered/Resolved]

NARRATIVE: CASE EVENT DATE: 20120820
